FAERS Safety Report 12892695 (Version 1)
Quarter: 2016Q4

REPORT INFORMATION
  Report Type: Spontaneous
  Country: JP (occurrence: JP)
  Receive Date: 20161028
  Receipt Date: 20161028
  Transmission Date: 20170207
  Serious: Yes (Hospitalization)
  Sender: FDA-Public Use
  Company Number: JP-ASTELLAS-2016US042252

PATIENT
  Age: 60 Year
  Sex: Male

DRUGS (2)
  1. ANCOTIL [Suspect]
     Active Substance: FLUCYTOSINE
     Indication: PRODUCT USED FOR UNKNOWN INDICATION
     Dosage: UNK UNK, UNKNOWN FREQ.
     Route: 048
  2. AMBISOME [Suspect]
     Active Substance: AMPHOTERICIN B
     Indication: MENINGITIS CRYPTOCOCCAL
     Dosage: 6 DF, UNKNOWN FREQ (6 VIALS/DAY)
     Route: 065

REACTIONS (3)
  - Neutrophil count decreased [Unknown]
  - Diarrhoea [Unknown]
  - Hypokalaemia [Unknown]
